FAERS Safety Report 13301772 (Version 1)
Quarter: 2017Q1

REPORT INFORMATION
  Report Type: Spontaneous
  Country: US (occurrence: US)
  Receive Date: 20170307
  Receipt Date: 20170307
  Transmission Date: 20170428
  Serious: Yes (Disabling)
  Sender: FDA-Public Use
  Company Number: None

PATIENT
  Age: 83 Year
  Sex: Female
  Weight: 73.64 kg

DRUGS (12)
  1. VITAMIN D3 [Concomitant]
     Active Substance: CHOLECALCIFEROL
  2. GLIPIZIDE. [Concomitant]
     Active Substance: GLIPIZIDE
  3. TELMISARTAN. [Concomitant]
     Active Substance: TELMISARTAN
  4. CINNAMON. [Concomitant]
     Active Substance: CINNAMON
  5. MULT VIT [Concomitant]
  6. TRICOR [Suspect]
     Active Substance: FENOFIBRATE
     Indication: BLOOD CHOLESTEROL INCREASED
     Route: 048
     Dates: start: 200810, end: 20170109
  7. VITAMIN E [Concomitant]
     Active Substance: .ALPHA.-TOCOPHEROL
  8. CALCIUM [Concomitant]
     Active Substance: CALCIUM
  9. FISH OIL [Concomitant]
     Active Substance: FISH OIL
  10. MYRBETRIQ [Concomitant]
     Active Substance: MIRABEGRON
  11. PREMARIN [Concomitant]
     Active Substance: ESTROGENS, CONJUGATED
  12. SIMVASTATIN. [Concomitant]
     Active Substance: SIMVASTATIN

REACTIONS (12)
  - Muscle disorder [None]
  - Bacterial infection [None]
  - Dyspnoea [None]
  - Exercise tolerance decreased [None]
  - Urinary retention [None]
  - Asthenia [None]
  - Weight increased [None]
  - Somnolence [None]
  - Swelling [None]
  - Urinary incontinence [None]
  - Activities of daily living impaired [None]
  - Fatigue [None]
